FAERS Safety Report 25247692 (Version 2)
Quarter: 2025Q2

REPORT INFORMATION
  Report Type: Report from Study
  Country: US (occurrence: US)
  Receive Date: 20250428
  Receipt Date: 20250502
  Transmission Date: 20250716
  Serious: No
  Sender: SANDOZ
  Company Number: US-SANDOZ-SDZ2025US026144

PATIENT
  Age: 16 Year
  Sex: Male

DRUGS (2)
  1. OMNITROPE [Suspect]
     Active Substance: SOMATROPIN
     Indication: Short stature
     Dosage: 0.54 ML, QD (5.8 VIAL/ 5 MG/ML)
     Route: 058
     Dates: start: 20250423
  2. OMNITROPE [Suspect]
     Active Substance: SOMATROPIN
     Indication: Short stature
     Dosage: 0.54 ML, QD (5.8 VIAL/ 5 MG/ML)
     Route: 058
     Dates: start: 20250423

REACTIONS (4)
  - Oropharyngeal pain [Not Recovered/Not Resolved]
  - Injection site swelling [Recovered/Resolved]
  - Product use issue [Unknown]
  - Liquid product physical issue [Unknown]

NARRATIVE: CASE EVENT DATE: 20250424
